FAERS Safety Report 6121020-5 (Version None)
Quarter: 2009Q1

REPORT INFORMATION
  Report Type: 
  Country: None (occurrence: None)
  Receive Date: 20090317
  Receipt Date: 20090309
  Transmission Date: 20090719
  Serious: Yes (Hospitalization, Other)
  Sender: FDA-Public Use
  Company Number: PHEH2009US02442

PATIENT
  Sex: Male
  Weight: 58.957 kg

DRUGS (13)
  1. RECLAST [Suspect]
     Dosage: UNK, ONCE YEARLY
     Route: 042
     Dates: start: 20090128
  2. ACTOS [Concomitant]
  3. GLUCOTROL [Concomitant]
  4. GLUCOPHAGE [Concomitant]
  5. CAPTOPRIL [Concomitant]
  6. ORAL SHELATION [Concomitant]
  7. CHOLESE [Concomitant]
  8. GLUCOSAGIN [Concomitant]
  9. ZOCOR [Concomitant]
     Dosage: 20 MG, UNK
  10. AFRIN [Concomitant]
  11. MULTI-VITAMINS [Concomitant]
  12. CASODEX [Concomitant]
  13. TRIAMTERENE [Concomitant]

REACTIONS (7)
  - ANAEMIA [None]
  - ARRHYTHMIA [None]
  - IRON DEFICIENCY [None]
  - MALNUTRITION [None]
  - PALPITATIONS [None]
  - RENAL FAILURE [None]
  - TRANSFUSION [None]
